FAERS Safety Report 9863748 (Version 2)
Quarter: 2014Q1

REPORT INFORMATION
  Report Type: Spontaneous
  Country: US (occurrence: US)
  Receive Date: 20140203
  Receipt Date: 20140207
  Transmission Date: 20141002
  Serious: No
  Sender: FDA-Public Use
  Company Number: US-PFIZER INC-2014029540

PATIENT
  Age: 38 Year
  Sex: Female
  Weight: 50.8 kg

DRUGS (1)
  1. CHANTIX [Suspect]
     Indication: SMOKING CESSATION THERAPY
     Dosage: 0.5 MG, DAILY
     Route: 048
     Dates: start: 201401, end: 20140129

REACTIONS (6)
  - Hypersensitivity [Recovering/Resolving]
  - Pruritus [Recovering/Resolving]
  - Rash papular [Recovering/Resolving]
  - Rash [Recovering/Resolving]
  - Rash macular [Recovering/Resolving]
  - Drug ineffective [Unknown]
